FAERS Safety Report 6212932-2 (Version None)
Quarter: 2009Q2

REPORT INFORMATION
  Report Type: 
  Country: None (occurrence: None)
  Receive Date: 20090601
  Receipt Date: 20090522
  Transmission Date: 20091009
  Serious: Yes (Hospitalization)
  Sender: FDA-Public Use
  Company Number: ADR2012009

PATIENT
  Age: 79 Year
  Sex: Male

DRUGS (7)
  1. AMLODIPINE [Suspect]
     Indication: HYPERTENSION
  2. ASPIRIN [Concomitant]
  3. CARVEDILOL [Concomitant]
  4. FUROSEMIDE [Concomitant]
  5. SIMVASTATIN [Concomitant]
  6. SPIRONOLACTONE [Concomitant]
  7. VALSARTAN [Concomitant]

REACTIONS (1)
  - MYOCLONUS [None]
